FAERS Safety Report 7071982-7 (Version None)
Quarter: 2010Q4

REPORT INFORMATION
  Report Type: 
  Country: None (occurrence: None)
  Receive Date: 20101029
  Receipt Date: 20091116
  Transmission Date: 20110411
  Serious: No
  Sender: FDA-Public Use
  Company Number: A0817222A

PATIENT
  Age: 69 Year
  Sex: Female

DRUGS (6)
  1. ADVAIR DISKUS 100/50 [Suspect]
     Indication: CHRONIC OBSTRUCTIVE PULMONARY DISEASE
     Dosage: 250MCG TWICE PER DAY
     Route: 055
     Dates: start: 20091112, end: 20091116
  2. SPIRIVA [Concomitant]
  3. DILTIAZEM [Concomitant]
  4. TRIAMTERENE [Concomitant]
  5. LEXAPRO [Concomitant]
  6. XOPENEX [Concomitant]

REACTIONS (1)
  - DYSPHONIA [None]
